FAERS Safety Report 7356066-2 (Version None)
Quarter: 2011Q1

REPORT INFORMATION
  Report Type: 
  Country: None (occurrence: None)
  Receive Date: 20110316
  Receipt Date: 20110309
  Transmission Date: 20110831
  Serious: Yes (Hospitalization)
  Sender: FDA-Public Use
  Company Number: GB-ELI_LILLY_AND_COMPANY-GB201103002723

PATIENT
  Age: 87 Year
  Sex: Male
  Weight: 80 kg

DRUGS (5)
  1. FLUOXETINE [Suspect]
     Indication: DEPRESSION
     Dosage: 20 MG, DAILY (1/D)
     Route: 048
     Dates: start: 20110122, end: 20110124
  2. ASPIRIN [Concomitant]
  3. FLOXACILLIN SODIUM [Concomitant]
     Dosage: 2 G, 4/D
     Route: 042
  4. OMEPRAZOLE [Concomitant]
     Dosage: 10 MG, DAILY (1/D)
  5. FLOXACILLIN SODIUM [Concomitant]
     Indication: ARTHRITIS BACTERIAL
     Dosage: 1 G, 4/D
     Route: 048
     Dates: start: 20101227, end: 20110107

REACTIONS (2)
  - HEPATOTOXICITY [None]
  - JAUNDICE [None]
